FAERS Safety Report 23825042 (Version 2)
Quarter: 2024Q2

REPORT INFORMATION
  Report Type: Spontaneous
  Country: PL (occurrence: PL)
  Receive Date: 20240507
  Receipt Date: 20240527
  Transmission Date: 20240715
  Serious: Yes (Hospitalization, Other)
  Sender: FDA-Public Use
  Company Number: PL-ADIENNEP-2024AD000356

PATIENT
  Sex: Male

DRUGS (7)
  1. CYCLOSPORINE [Suspect]
     Active Substance: CYCLOSPORINE
     Indication: Product used for unknown indication
     Dosage: SINCE DAY +5
     Route: 065
  2. RITUXIMAB [Suspect]
     Active Substance: RITUXIMAB
     Indication: Prophylaxis
     Dosage: ON DAY +5
     Route: 065
  3. FLUDARABINE PHOSPHATE [Suspect]
     Active Substance: FLUDARABINE PHOSPHATE
     Indication: Allogenic stem cell transplantation
     Dosage: 30 MG/M2, QD (30 MG/M2/DAY, DAYS -7 TO -3)
     Route: 065
  4. THIOTEPA [Suspect]
     Active Substance: THIOTEPA
     Indication: Allogenic stem cell transplantation
     Dosage: 10 MG/KG, QD (10 MG/KG/DAY, DAY -2)
     Route: 065
  5. CYCLOPHOSPHAMIDE [Suspect]
     Active Substance: CYCLOPHOSPHAMIDE
     Indication: Prophylaxis against graft versus host disease
     Dosage: 50 MG/KG, QD (50 MG/KG/DAY, DAYS +3, +5)
     Route: 065
  6. MYCOPHENOLATE MOFETIL [Suspect]
     Active Substance: MYCOPHENOLATE MOFETIL
     Indication: Prophylaxis against graft versus host disease
     Dosage: SINCE DAY +1
     Route: 065
  7. BUSULFAN [Suspect]
     Active Substance: BUSULFAN
     Indication: Allogenic stem cell transplantation
     Dosage: 3.2 MG/KG, QD (3.2 MG/KG/DAY, DAYS -7 TO -4)
     Route: 065

REACTIONS (13)
  - Graft versus host disease [Recovered/Resolved]
  - Acute graft versus host disease in skin [Recovered/Resolved]
  - Acute graft versus host disease in intestine [Recovered/Resolved]
  - Pyrexia [Unknown]
  - Epididymitis [Unknown]
  - Urinary tract infection [Recovered/Resolved]
  - Gastrointestinal inflammation [Unknown]
  - Klebsiella urinary tract infection [Unknown]
  - Klebsiella sepsis [Recovered/Resolved]
  - Klebsiella infection [Not Recovered/Not Resolved]
  - Enterococcal infection [Unknown]
  - Bacterial infection [Unknown]
  - Gastrointestinal bacterial infection [Not Recovered/Not Resolved]
